FAERS Safety Report 4338507-8 (Version None)
Quarter: 2004Q2

REPORT INFORMATION
  Report Type: 
  Country: None (occurrence: None)
  Receive Date: 20040414
  Receipt Date: 20040402
  Transmission Date: 20050107
  Serious: Yes (Hospitalization)
  Sender: FDA-Public Use
  Company Number: FR-GLAXOSMITHKLINE-B0329118A

PATIENT
  Age: 47 Year
  Sex: Male

DRUGS (4)
  1. ZOPHREN [Suspect]
     Dosage: 8MG PER DAY
     Route: 042
     Dates: start: 20040212
  2. GEMZAR [Suspect]
     Dosage: 2.4MG PER DAY
     Route: 042
     Dates: start: 20040212
  3. SOLU-MEDROL [Suspect]
     Dosage: 40MG PER DAY
     Route: 042
     Dates: start: 20040212
  4. VOGALENE [Concomitant]
     Dosage: 2.5MG TWICE PER DAY
     Route: 048
     Dates: start: 20040213, end: 20040219

REACTIONS (7)
  - DERMATITIS EXFOLIATIVE [None]
  - OEDEMA PERIPHERAL [None]
  - PRURITUS [None]
  - RASH [None]
  - RASH ERYTHEMATOUS [None]
  - RASH GENERALISED [None]
  - RASH PAPULAR [None]
